FAERS Safety Report 20778953 (Version 9)
Quarter: 2023Q2

REPORT INFORMATION
  Report Type: Spontaneous
  Country: US (occurrence: US)
  Receive Date: 20220503
  Receipt Date: 20230407
  Transmission Date: 20230721
  Serious: No
  Sender: FDA-Public Use
  Company Number: US-PFIZER INC-2020398343

PATIENT
  Age: 62 Year
  Sex: Female

DRUGS (5)
  1. MEKTOVI [Suspect]
     Active Substance: BINIMETINIB
     Indication: Soft tissue sarcoma
     Dosage: 15 MG
  2. MEKTOVI [Suspect]
     Active Substance: BINIMETINIB
     Dosage: 3 TABLETS 2 TIMES A DAY
     Route: 048
  3. MEKTOVI [Suspect]
     Active Substance: BINIMETINIB
     Dosage: 15MG 1 TAB MORNING, 2 TABS EVENING
  4. MEKTOVI [Suspect]
     Active Substance: BINIMETINIB
     Dosage: 30 MG, 2X/DAY (2 TAB(S) 2 TIMES A DAY X 30 DAYS MDD: 30MG)
     Route: 048
  5. MEKTOVI [Suspect]
     Active Substance: BINIMETINIB
     Dosage: 45 MG, DAILY (2 TAB(S) ORALLY IN THE MORNING AND AT BEDTIME X 60 DAYS MDD: 45MG)
     Route: 048

REACTIONS (3)
  - Neoplasm progression [Unknown]
  - Illness [Unknown]
  - Off label use [Unknown]
